FAERS Safety Report 8529487-X (Version None)
Quarter: 2012Q3

REPORT INFORMATION
  Report Type: 
  Country: None (occurrence: None)
  Receive Date: 20120723
  Receipt Date: 20120713
  Transmission Date: 20120928
  Serious: Yes (Other)
  Sender: FDA-Public Use
  Company Number: US-US-EMD SERONO, INC.-7147844

PATIENT
  Sex: Female

DRUGS (1)
  1. REBIF [Suspect]
     Indication: PRODUCT USED FOR UNKNOWN INDICATION
     Route: 058
     Dates: start: 20050110

REACTIONS (4)
  - NEPHROLITHIASIS [None]
  - BLOOD URINE PRESENT [None]
  - STAPHYLOCOCCAL INFECTION [None]
  - BLOOD TEST ABNORMAL [None]
